FAERS Safety Report 14149950 (Version 6)
Quarter: 2017Q4

REPORT INFORMATION
  Report Type: Report from Study
  Country: US (occurrence: US)
  Receive Date: 20171101
  Receipt Date: 20171215
  Transmission Date: 20180321
  Serious: Yes (Hospitalization)
  Sender: FDA-Public Use
  Company Number: US-ASTRAZENECA-2017SF03368

PATIENT
  Age: 68 Year
  Sex: Female

DRUGS (11)
  1. ZOSYN [Suspect]
     Active Substance: PIPERACILLIN SODIUM\TAZOBACTAM SODIUM
     Indication: PYREXIA
     Route: 065
     Dates: start: 20171007
  2. RITUXIMAB. [Suspect]
     Active Substance: RITUXIMAB
     Indication: MANTLE CELL LYMPHOMA
     Dosage: 585.0MG ONCE/SINGLE ADMINISTRATION
     Route: 042
     Dates: start: 20170926, end: 20170926
  3. HYDROCHLORTHIAZIDE [Concomitant]
     Active Substance: HYDROCHLOROTHIAZIDE
     Indication: MANTLE CELL LYMPHOMA
     Route: 048
     Dates: start: 2000
  4. BENDAMUSTINE [Suspect]
     Active Substance: BENDAMUSTINE
     Indication: MANTLE CELL LYMPHOMA
     Dosage: 140.4MG ONCE/SINGLE ADMINISTRATION
     Route: 042
     Dates: start: 20170926, end: 20170926
  5. VITAMIN B12 [Concomitant]
     Active Substance: CYANOCOBALAMIN
     Indication: MANTLE CELL LYMPHOMA
     Route: 030
     Dates: start: 201706
  6. ACALABRUTINIB. [Suspect]
     Active Substance: ACALABRUTINIB
     Indication: MANTLE CELL LYMPHOMA
     Route: 048
     Dates: start: 20170926, end: 20171006
  7. VANCOMYCIN [Suspect]
     Active Substance: VANCOMYCIN
     Indication: PYREXIA
     Dosage: 1000.0MG ONCE/SINGLE ADMINISTRATION
     Route: 042
     Dates: start: 20171007, end: 20171007
  8. BENDAMUSTINE [Suspect]
     Active Substance: BENDAMUSTINE
     Indication: MANTLE CELL LYMPHOMA
     Dosage: 140.4MG ONCE/SINGLE ADMINISTRATION
     Route: 042
     Dates: start: 20170927, end: 20170927
  9. ACALABRUTINIB. [Suspect]
     Active Substance: ACALABRUTINIB
     Indication: MANTLE CELL LYMPHOMA
     Route: 048
     Dates: start: 20171013, end: 20171013
  10. VANCOMYCIN [Suspect]
     Active Substance: VANCOMYCIN
     Indication: PYREXIA
     Dosage: 1000.0MG ONCE/SINGLE ADMINISTRATION
     Route: 042
     Dates: start: 20171013, end: 20171013
  11. COMPAZINE [Concomitant]
     Active Substance: PROCHLORPERAZINE MALEATE
     Indication: MANTLE CELL LYMPHOMA
     Dosage: 10.0MG AS REQUIRED
     Route: 048
     Dates: start: 20171003, end: 20171017

REACTIONS (2)
  - Hypersensitivity [Recovered/Resolved]
  - Pyrexia [Recovered/Resolved]

NARRATIVE: CASE EVENT DATE: 20171006
